FAERS Safety Report 13879757 (Version 1)
Quarter: 2017Q3

REPORT INFORMATION
  Report Type: Spontaneous
  Country: US (occurrence: US)
  Receive Date: 20170814
  Receipt Date: 20170814
  Transmission Date: 20171127
  Serious: Yes (Other)
  Sender: FDA-Public Use
  Company Number: None

PATIENT
  Age: 62 Year
  Sex: Male
  Weight: 81 kg

DRUGS (5)
  1. LOSARTAN W/POTASSIUM [Concomitant]
  2. VITAMINS [Concomitant]
     Active Substance: VITAMINS
  3. CHANTIX [Suspect]
     Active Substance: VARENICLINE TARTRATE
     Indication: SMOKING CESSATION THERAPY
     Route: 048
     Dates: start: 20110328, end: 20110714
  4. BABY ASA [Concomitant]
     Active Substance: ASPIRIN
  5. ATORVISTATIN [Concomitant]

REACTIONS (8)
  - Verbal abuse [None]
  - Physical abuse [None]
  - Personality change [None]
  - Anger [None]
  - Hostility [None]
  - Marital problem [None]
  - Aggression [None]
  - Psychological abuse [None]

NARRATIVE: CASE EVENT DATE: 20110701
